FAERS Safety Report 9935288 (Version 1)
Quarter: 2014Q1

REPORT INFORMATION
  Report Type: Spontaneous
  Country: DK (occurrence: FR)
  Receive Date: 20140228
  Receipt Date: 20140228
  Transmission Date: 20141002
  Serious: Yes (Life-Threatening, Hospitalization)
  Sender: FDA-Public Use
  Company Number: FR-FRI-1000054676

PATIENT
  Age: 36 Year
  Sex: Female

DRUGS (6)
  1. ESCITALOPRAM [Suspect]
     Dosage: 10 MG
     Route: 048
  2. ESCITALOPRAM [Suspect]
     Dosage: OVERDOSE OF ONE INTAKE OF 7 TABLETS (I.E. 70 MG)
     Route: 048
     Dates: start: 20131014, end: 20131014
  3. BACLOFENE [Suspect]
     Dosage: 40 MG
     Route: 048
  4. BACLOFENE [Suspect]
     Dosage: OVERDOSE OF ONE INTAKE OF 8 BOXES (UNKNOWN STRENGTH)
     Route: 048
     Dates: start: 20131014, end: 20131014
  5. CHLORMADINONE [Concomitant]
     Dosage: 1 DF
  6. CHLORMADINONE [Concomitant]
     Dosage: OVERDOSE OF ONE INTAKE OF 9 TABLETS

REACTIONS (2)
  - Coma [Recovered/Resolved]
  - Intentional overdose [Recovered/Resolved]
